FAERS Safety Report 7800227-2 (Version None)
Quarter: 2011Q4

REPORT INFORMATION
  Report Type: 
  Country: None (occurrence: None)
  Receive Date: 20111006
  Receipt Date: 20110922
  Transmission Date: 20120403
  Serious: Yes (Hospitalization)
  Sender: FDA-Public Use
  Company Number: DE-UCBSA-001328

PATIENT
  Age: 38 Year
  Sex: Female

DRUGS (18)
  1. VALPROATE SODIUM [Concomitant]
     Indication: EPILEPSY
     Dates: end: 20090125
  2. VALPROATE SODIUM [Concomitant]
     Dates: start: 20090126
  3. VIMPAT [Interacting]
     Route: 048
     Dates: start: 20081128
  4. TOPIRAMATE [Concomitant]
     Indication: EPILEPSY
     Dates: start: 20080101, end: 20081203
  5. TOPIRAMATE [Concomitant]
     Dates: start: 20081204, end: 20081206
  6. TOPIRAMATE [Concomitant]
     Dates: start: 20090117, end: 20090118
  7. TOPIRAMATE [Concomitant]
     Dates: start: 20090130
  8. ARIPIPRAZOL [Concomitant]
     Dates: start: 20081209, end: 20081213
  9. VIMPAT [Suspect]
     Route: 048
     Dates: start: 20081113, end: 20081116
  10. VIMPAT [Interacting]
     Route: 048
     Dates: start: 20081124, end: 20081127
  11. TOPIRAMATE [Concomitant]
     Dates: start: 20090119, end: 20090121
  12. ARIPIPRAZOL [Concomitant]
     Dates: start: 20081216
  13. TOPIRAMATE [Concomitant]
     Dates: start: 20081207, end: 20090115
  14. ARIPIPRAZOL [Concomitant]
     Dates: start: 20081214, end: 20081215
  15. VIMPAT [Interacting]
     Route: 048
     Dates: start: 20081117, end: 20081123
  16. TOPIRAMATE [Concomitant]
     Dates: start: 20090116, end: 20090116
  17. ARIPIPRAZOL [Concomitant]
     Indication: PSYCHOTIC DISORDER
     Dates: start: 20081129, end: 20081208
  18. PANTOPRAZOLE [Concomitant]
     Indication: GASTRITIS PROPHYLAXIS

REACTIONS (1)
  - NAUSEA [None]
